FAERS Safety Report 7281690-5 (Version None)
Quarter: 2011Q1

REPORT INFORMATION
  Report Type: 
  Country: None (occurrence: None)
  Receive Date: 20110208
  Receipt Date: 20110204
  Transmission Date: 20110831
  Serious: Yes (Other)
  Sender: FDA-Public Use
  Company Number: US-PFIZER INC-2011026187

PATIENT
  Sex: Male
  Weight: 81.633 kg

DRUGS (10)
  1. LYRICA [Suspect]
     Indication: SPINAL COLUMN STENOSIS
     Dosage: 50 MG, 2X/DAY
     Route: 048
     Dates: start: 20110119, end: 20110124
  2. LYRICA [Suspect]
     Indication: BACK DISORDER
  3. TOPROL-XL [Concomitant]
     Indication: CARDIAC DISORDER
     Dosage: UNK
  4. IBANDRONATE SODIUM [Concomitant]
     Indication: BONE DISORDER
     Dosage: UNK
  5. CARDIZEM [Concomitant]
     Indication: CARDIAC DISORDER
     Dosage: UNK
  6. RAMIPRIL [Concomitant]
     Indication: CARDIAC DISORDER
     Dosage: UNK
  7. LUTEIN [Concomitant]
     Dosage: UNK
  8. FISH OIL [Concomitant]
     Indication: SUPPLEMENTATION THERAPY
     Dosage: UNK
  9. ACETYLSALICYLIC ACID [Concomitant]
     Indication: CARDIAC DISORDER
     Dosage: 81 MG, 1X/DAY
     Route: 048
  10. CALCIUM [Concomitant]
     Indication: SUPPLEMENTATION THERAPY
     Dosage: UNK

REACTIONS (3)
  - BACK PAIN [None]
  - PHOTOPSIA [None]
  - MYALGIA [None]
